FAERS Safety Report 9879386 (Version 2)
Quarter: 2014Q1

REPORT INFORMATION
  Report Type: Spontaneous
  Country: US (occurrence: US)
  Receive Date: 20140206
  Receipt Date: 20140313
  Transmission Date: 20141002
  Serious: Yes (Other)
  Sender: FDA-Public Use
  Company Number: US-JNJFOC-20140115101

PATIENT
  Age: 72 Year
  Sex: Female
  Weight: 92.4 kg

DRUGS (19)
  1. DURAGESIC [Suspect]
     Indication: PAIN
     Route: 062
     Dates: end: 20130820
  2. DURAGESIC [Suspect]
     Indication: PAIN
     Route: 062
     Dates: start: 20120621, end: 20130903
  3. ACETAMINOPHEN [Suspect]
     Route: 065
  4. ACETAMINOPHEN [Suspect]
     Indication: PAIN
     Route: 065
     Dates: end: 20130903
  5. DIPHENHYDRAMINE [Suspect]
     Route: 065
  6. DIPHENHYDRAMINE [Suspect]
     Indication: RHINITIS ALLERGIC
     Route: 065
     Dates: start: 20091021, end: 20130903
  7. LIPITOR [Suspect]
     Indication: HYPERLIPIDAEMIA
     Route: 048
     Dates: start: 20101202
  8. LIPITOR [Suspect]
     Indication: HYPERLIPIDAEMIA
     Route: 048
     Dates: start: 20111017, end: 20130820
  9. EXEMESTANE [Suspect]
     Indication: BREAST CANCER
     Route: 048
     Dates: start: 20080717
  10. ASPIRIN [Concomitant]
     Indication: CARDIOVASCULAR EVENT PROPHYLAXIS
     Route: 065
     Dates: start: 20090727
  11. ATORVASTATIN [Concomitant]
     Indication: HYPERLIPIDAEMIA
     Route: 065
     Dates: start: 20111017, end: 20130820
  12. DOCUSATE CALCIUM [Concomitant]
     Indication: CONSTIPATION
     Route: 065
     Dates: start: 20090727
  13. CALCIUM CARBONATE [Concomitant]
     Indication: PROPHYLAXIS
     Route: 065
     Dates: start: 20101021
  14. INSULIN GLARGINE [Concomitant]
     Indication: DIABETES MELLITUS
     Route: 065
     Dates: start: 20130130
  15. COSOPT [Concomitant]
     Indication: PRODUCT USED FOR UNKNOWN INDICATION
     Route: 065
     Dates: start: 20130123
  16. BACTRIM [Concomitant]
     Route: 065
  17. LORAZEPAM [Concomitant]
     Route: 065
  18. IRON [Concomitant]
     Route: 065
  19. NEURONTIN [Concomitant]
     Route: 065

REACTIONS (1)
  - Balance disorder [Recovering/Resolving]
